FAERS Safety Report 19228758 (Version 3)
Quarter: 2021Q3

REPORT INFORMATION
  Report Type: Other
  Country: CA (occurrence: CA)
  Receive Date: 20210507
  Receipt Date: 20210824
  Transmission Date: 20211014
  Serious: Yes (Other)
  Sender: FDA-Public Use
  Company Number: CA-ROCHE-2825535

PATIENT
  Age: 50 Year
  Sex: Male

DRUGS (7)
  1. XOLAIR [Suspect]
     Active Substance: OMALIZUMAB
     Route: 058
     Dates: start: 20210811
  2. AERIUS [Concomitant]
     Indication: PRODUCT USED FOR UNKNOWN INDICATION
     Route: 048
  3. XOLAIR [Suspect]
     Active Substance: OMALIZUMAB
     Indication: ASTHMA
     Route: 058
     Dates: start: 20140515
  4. XOLAIR [Suspect]
     Active Substance: OMALIZUMAB
     Route: 058
     Dates: start: 20210428
  5. EPIPEN [Concomitant]
     Active Substance: EPINEPHRINE
     Indication: PRODUCT USED FOR UNKNOWN INDICATION
     Route: 065
  6. CROMOLYN [Concomitant]
     Active Substance: CROMOLYN
     Indication: PRODUCT USED FOR UNKNOWN INDICATION
     Route: 048
  7. SINGULAIR [Concomitant]
     Active Substance: MONTELUKAST SODIUM
     Indication: PRODUCT USED FOR UNKNOWN INDICATION
     Route: 048

REACTIONS (15)
  - Secretion discharge [Not Recovered/Not Resolved]
  - Obstructive airways disorder [Recovering/Resolving]
  - Blood pressure increased [Unknown]
  - Wheezing [Recovered/Resolved]
  - Fall [Unknown]
  - Wound infection [Unknown]
  - Forced expiratory volume decreased [Recovering/Resolving]
  - Dyspnoea [Unknown]
  - Wound [Unknown]
  - Joint injury [Unknown]
  - Cellulitis [Unknown]
  - Soft tissue injury [Unknown]
  - Chest discomfort [Unknown]
  - Arthropod sting [Unknown]
  - Asthma [Unknown]

NARRATIVE: CASE EVENT DATE: 20210428
